FAERS Safety Report 5743037-2 (Version None)
Quarter: 2008Q2

REPORT INFORMATION
  Report Type: 
  Country: None (occurrence: None)
  Receive Date: 20080519
  Receipt Date: 20080423
  Transmission Date: 20081010
  Serious: Yes (Disabling)
  Sender: FDA-Public Use
  Company Number: HN-ROCHE-560769

PATIENT
  Age: 71 Year
  Sex: Female

DRUGS (1)
  1. BONIVA [Suspect]
     Indication: OSTEOPOROSIS
     Dosage: DOSAGE REGIMEN: EACH THREE MONTH.STRENGTH: 3MG/3ML.
     Route: 042
     Dates: start: 20080422

REACTIONS (5)
  - BONE PAIN [None]
  - DYSPNOEA [None]
  - HEADACHE [None]
  - MUSCULOSKELETAL CHEST PAIN [None]
  - PAIN [None]
